FAERS Safety Report 7978751-1 (Version None)
Quarter: 2011Q4

REPORT INFORMATION
  Report Type: 
  Country: None (occurrence: None)
  Receive Date: 20111214
  Receipt Date: 20111214
  Transmission Date: 20120403
  Serious: Yes (Death, Life-Threatening, Hospitalization, Other)
  Sender: FDA-Public Use
  Company Number: IL-PFIZER INC-2007012728

PATIENT
  Age: 53 Year
  Sex: Male
  Weight: 82 kg

DRUGS (8)
  1. DISOTHIAZIDE [Concomitant]
     Route: 048
     Dates: start: 20030901
  2. PRILOSEC [Concomitant]
     Route: 048
     Dates: start: 20030901
  3. SIMVASTATIN [Concomitant]
     Route: 048
     Dates: start: 20030901
  4. NORMITEN [Concomitant]
     Route: 048
     Dates: start: 19950101
  5. BONDORMIN [Concomitant]
     Route: 048
     Dates: start: 20030901
  6. SUNITINIB MALATE [Suspect]
     Indication: RENAL CELL CARCINOMA
     Dosage: 50 MG, 1X/DAY
     Route: 048
     Dates: start: 20060827, end: 20060908
  7. SUNITINIB MALATE [Suspect]
     Dosage: 37.5 MG, 1X/DAY
     Route: 048
     Dates: start: 20060926, end: 20070123
  8. CITALOPRAM HYDROBROMIDE [Concomitant]
     Route: 048
     Dates: start: 20030901

REACTIONS (3)
  - SCROTAL HAEMATOCOELE [None]
  - THROMBOCYTOPENIA [None]
  - MULTI-ORGAN FAILURE [None]
